FAERS Safety Report 8807096 (Version 1)
Quarter: 2012Q4

REPORT INFORMATION
  Report Type: 
  Country: US (occurrence: US)
  Receive Date: 20120925
  Receipt Date: 20120925
  Transmission Date: 20130627
  Serious: No
  Sender: FDA-Public Use
  Company Number: US-ASTRAZENECA-2012SE70736

PATIENT
  Age: 71 Year
  Sex: Female

DRUGS (3)
  1. NEXIUM [Suspect]
     Route: 048
  2. OMEPRAZOLE [Suspect]
     Route: 048
  3. PANTOPRAZOLE [Suspect]
     Route: 065

REACTIONS (5)
  - Visual impairment [Unknown]
  - Fatigue [Unknown]
  - Withdrawal syndrome [Unknown]
  - Adverse drug reaction [Unknown]
  - Drug dose omission [Unknown]
